FAERS Safety Report 21263903 (Version 1)
Quarter: 2022Q3

REPORT INFORMATION
  Report Type: Spontaneous
  Country: US (occurrence: US)
  Receive Date: 20220829
  Receipt Date: 20220829
  Transmission Date: 20221027
  Serious: Yes (Other)
  Sender: FDA-Public Use
  Company Number: US-RECORDATI-2022000310

PATIENT
  Age: 3 Year
  Sex: Male
  Weight: 12.4 kg

DRUGS (22)
  1. DACTINOMYCIN [Suspect]
     Active Substance: DACTINOMYCIN
     Indication: Embryonal rhabdomyosarcoma
     Dosage: ON DAY 1 OF CYCLES 1 AND 3
     Route: 042
     Dates: start: 20180621, end: 20180621
  2. CYCLOPHOSPHAMIDE [Suspect]
     Active Substance: CYCLOPHOSPHAMIDE
     Indication: Embryonal rhabdomyosarcoma
     Dosage: ON DAY 1 OF CYCLES 1 AND 3
     Dates: start: 20180621, end: 20180621
  3. VINCRISTINE SULFATE [Suspect]
     Active Substance: VINCRISTINE SULFATE
     Indication: Embryonal rhabdomyosarcoma
     Dosage: 0.8 MILLIGRAM
     Route: 042
     Dates: start: 20180628, end: 20180628
  4. VINCRISTINE SULFATE [Suspect]
     Active Substance: VINCRISTINE SULFATE
     Dosage: 0.8 MILLIGRAM
     Route: 042
     Dates: start: 20180704, end: 20180704
  5. TEMSIROLIMUS [Suspect]
     Active Substance: TEMSIROLIMUS
     Indication: Embryonal rhabdomyosarcoma
     Dosage: 8.5 MILLIGRAM
     Route: 042
     Dates: start: 20180628, end: 20180628
  6. TEMSIROLIMUS [Suspect]
     Active Substance: TEMSIROLIMUS
     Dosage: 8.5 MILLIGRAM
     Route: 042
     Dates: start: 20180704, end: 20180704
  7. MESNA [Concomitant]
     Active Substance: MESNA
     Indication: Embryonal rhabdomyosarcoma
     Dosage: 180 MILLIGRAM
     Route: 065
     Dates: start: 20180621, end: 20180621
  8. MELATONIN [Concomitant]
     Active Substance: MELATONIN
     Indication: Sleep disorder
     Dosage: UNK
     Route: 065
     Dates: start: 20180703
  9. RISPERIDONE [Concomitant]
     Active Substance: RISPERIDONE
     Indication: Anxiety
     Dosage: UNK
     Route: 065
     Dates: start: 20180706
  10. VANCOMYCIN [Concomitant]
     Active Substance: VANCOMYCIN
     Indication: Febrile neutropenia
     Dosage: UNK
     Route: 065
     Dates: start: 20180705, end: 20180706
  11. VANCOMYCIN [Concomitant]
     Active Substance: VANCOMYCIN
     Dosage: UNK
     Route: 065
     Dates: start: 20180706, end: 20180707
  12. MIRALAX [Concomitant]
     Active Substance: POLYETHYLENE GLYCOL 3350
     Indication: Therapeutic procedure
     Dosage: UNK
     Route: 065
     Dates: start: 20180706
  13. BACTRIM [Concomitant]
     Active Substance: SULFAMETHOXAZOLE\TRIMETHOPRIM
     Indication: Prophylaxis
     Dosage: UNK
     Route: 065
     Dates: start: 20180706
  14. DURATEARS FREE [Concomitant]
     Indication: Gaze palsy
     Dosage: UNK
     Route: 065
     Dates: start: 20180704
  15. ARTIFICIAL TEARS [CARMELLOSE SODIUM] [Concomitant]
     Indication: Product used for unknown indication
     Dosage: UNK
     Route: 065
     Dates: start: 20180704
  16. ZOFRAN ODT [Concomitant]
     Active Substance: ONDANSETRON HYDROCHLORIDE
     Indication: Nausea
     Dosage: UNK
     Route: 065
     Dates: start: 20180703, end: 20180708
  17. CEFEPIME [Concomitant]
     Active Substance: CEFEPIME HYDROCHLORIDE
     Indication: Febrile neutropenia
     Dosage: UNK
     Route: 065
     Dates: start: 20180703
  18. TYLENOL [Concomitant]
     Active Substance: ACETAMINOPHEN
     Indication: Pain
     Dosage: UNK
     Route: 065
     Dates: start: 20180703, end: 20180707
  19. OXYCODONE [Concomitant]
     Active Substance: OXYCODONE
     Indication: Pain
     Dosage: UNK
     Route: 065
     Dates: start: 20180704, end: 20180706
  20. LORAZEPAM [Concomitant]
     Active Substance: LORAZEPAM
     Indication: Anxiety
     Dosage: UNK
     Route: 065
     Dates: start: 20180704, end: 20180705
  21. MORPHINE [Concomitant]
     Active Substance: MORPHINE
     Indication: Pain
     Dosage: UNK
     Route: 065
     Dates: start: 20180706, end: 20180709
  22. PEGFILGRASTIM [Concomitant]
     Active Substance: PEGFILGRASTIM
     Indication: Product used for unknown indication
     Dosage: UNK
     Route: 065
     Dates: start: 20180625, end: 20180625

REACTIONS (2)
  - Stomatitis [Recovered/Resolved]
  - Febrile neutropenia [Recovering/Resolving]

NARRATIVE: CASE EVENT DATE: 20180703
